FAERS Safety Report 4630017-3 (Version None)
Quarter: 2005Q2

REPORT INFORMATION
  Report Type: 
  Country: None (occurrence: None)
  Receive Date: 20050408
  Receipt Date: 20050328
  Transmission Date: 20051028
  Serious: Yes (Death, Other)
  Sender: FDA-Public Use
  Company Number: US-NOVOPROD-243224

PATIENT
  Age: 49 Year
  Sex: Female

DRUGS (3)
  1. NOVOSEVEN [Suspect]
     Indication: PULMONARY HAEMORRHAGE
     Dosage: 36 MG, UNK
  2. NOVOSEVEN [Suspect]
     Dosage: 48 MG, UNK
  3. NOVOSEVEN [Suspect]
     Dosage: 12 MG, UNK

REACTIONS (2)
  - MEDICAL DEVICE COMPLICATION [None]
  - PULMONARY THROMBOSIS [None]
